FAERS Safety Report 15007386 (Version 2)
Quarter: 2018Q3

REPORT INFORMATION
  Report Type: Report from Study
  Country: GB (occurrence: GB)
  Receive Date: 20180613
  Receipt Date: 20180720
  Transmission Date: 20181010
  Serious: Yes (Other)
  Sender: FDA-Public Use
  Company Number: GB-UCBSA-2018022894

PATIENT
  Age: 33 Year
  Sex: Female

DRUGS (1)
  1. CERTOLIZUMAB PEGOL JIA AUTOCLICKS [Suspect]
     Active Substance: CERTOLIZUMAB PEGOL
     Indication: JUVENILE IDIOPATHIC ARTHRITIS
     Dosage: 400 MG, EV 2 WEEKS(QOW)
     Route: 058
     Dates: start: 20180511, end: 2018

REACTIONS (7)
  - Hot flush [Unknown]
  - Fatigue [Unknown]
  - Abscess intestinal [Unknown]
  - Abdominal pain [Unknown]
  - Abdominal pain upper [Unknown]
  - Paraesthesia [Unknown]
  - Hypoaesthesia [Unknown]

NARRATIVE: CASE EVENT DATE: 2018
